FAERS Safety Report 16817965 (Version 1)
Quarter: 2019Q3

REPORT INFORMATION
  Report Type: Report from Study
  Country: None (occurrence: US)
  Receive Date: 20190917
  Receipt Date: 20190917
  Transmission Date: 20191005
  Serious: Yes (Other)
  Sender: FDA-Public Use
  Company Number: US-ABBVIE-19K-163-2884633-00

PATIENT
  Age: 55 Year
  Sex: Female
  Weight: 77.18 kg

DRUGS (2)
  1. VENCLEXTA [Suspect]
     Active Substance: VENETOCLAX
     Indication: B-CELL LYMPHOMA
     Route: 048
     Dates: start: 201801
  2. VENCLEXTA [Suspect]
     Active Substance: VENETOCLAX
     Dosage: DOSE REDUCED
     Route: 048
     Dates: start: 201908

REACTIONS (4)
  - Fatigue [Recovered/Resolved]
  - Haemoglobin decreased [Recovered/Resolved]
  - Off label use [Unknown]
  - Internal haemorrhage [Recovered/Resolved]

NARRATIVE: CASE EVENT DATE: 201907
